FAERS Safety Report 23505227 (Version 1)
Quarter: 2024Q1

REPORT INFORMATION
  Report Type: Spontaneous
  Country: AU (occurrence: AU)
  Receive Date: 20240209
  Receipt Date: 20240209
  Transmission Date: 20240410
  Serious: Yes (Hospitalization, Other)
  Sender: FDA-Public Use
  Company Number: AU-GLAXOSMITHKLINE-AU2024GSK005657

PATIENT
  Age: 70 Year
  Sex: Female

DRUGS (6)
  1. VALACYCLOVIR [Suspect]
     Active Substance: VALACYCLOVIR HYDROCHLORIDE
     Indication: Varicella zoster virus infection
     Dosage: 1 G, 3 TIMES PER DAY
  2. VALACYCLOVIR [Suspect]
     Active Substance: VALACYCLOVIR HYDROCHLORIDE
     Indication: Rash vesicular
  3. ACYCLOVIR [Suspect]
     Active Substance: ACYCLOVIR
     Indication: Varicella zoster virus infection
     Dosage: 285 MG, TOTAL
     Route: 042
  4. ACYCLOVIR [Suspect]
     Active Substance: ACYCLOVIR
     Indication: Rash vesicular
  5. GENTAMICIN [Concomitant]
     Active Substance: GENTAMICIN
     Indication: Acute kidney injury
     Dosage: UNK
  6. FLUCLOXACILLIN [Concomitant]
     Active Substance: FLUCLOXACILLIN
     Indication: Acute kidney injury

REACTIONS (3)
  - Neurotoxicity [Recovered/Resolved]
  - Myoclonus [Recovered/Resolved]
  - Confusional state [Recovered/Resolved]
